FAERS Safety Report 12313469 (Version 1)
Quarter: 2016Q2

REPORT INFORMATION
  Report Type: Spontaneous
  Country: US (occurrence: US)
  Receive Date: 20160428
  Receipt Date: 20160428
  Transmission Date: 20160815
  Serious: No
  Sender: FDA-Public Use
  Company Number: US-BIOGEN-2016BI00219343

PATIENT
  Sex: Female

DRUGS (2)
  1. TECFIDERA [Suspect]
     Active Substance: DIMETHYL FUMARATE
     Route: 048
  2. TECFIDERA [Suspect]
     Active Substance: DIMETHYL FUMARATE
     Indication: MULTIPLE SCLEROSIS
     Route: 048

REACTIONS (8)
  - Lymphadenopathy [Unknown]
  - Dyspepsia [Unknown]
  - Gastric disorder [Unknown]
  - Flushing [Unknown]
  - Diarrhoea [Unknown]
  - Rhinorrhoea [Unknown]
  - Headache [Unknown]
  - Insomnia [Unknown]
